FAERS Safety Report 5809942-3 (Version None)
Quarter: 2008Q3

REPORT INFORMATION
  Report Type: 
  Country: None (occurrence: None)
  Receive Date: 20080714
  Receipt Date: 20080714
  Transmission Date: 20090109
  Serious: Yes (Life-Threatening, Other)
  Sender: FDA-Public Use
  Company Number: None

PATIENT

DRUGS (2)
  1. MIRAPEX [Suspect]
     Indication: RESTLESS LEGS SYNDROME
     Dosage: 1 @ PM NIGHTLY PO
     Route: 048
     Dates: start: 20080303, end: 20080709
  2. REQUIP [Suspect]
     Indication: RESTLESS LEGS SYNDROME
     Dosage: 1@ PM NIGHTLY PO
     Route: 048
     Dates: start: 20080709, end: 20080709

REACTIONS (17)
  - CHEST DISCOMFORT [None]
  - DRY EYE [None]
  - DYSPHAGIA [None]
  - DYSSTASIA [None]
  - EYE PAIN [None]
  - HEART RATE INCREASED [None]
  - MUSCULAR WEAKNESS [None]
  - NASAL CONGESTION [None]
  - PHARYNGEAL OEDEMA [None]
  - PHOTOPHOBIA [None]
  - POLYURIA [None]
  - PRODUCTIVE COUGH [None]
  - RASH [None]
  - SINUS HEADACHE [None]
  - THROAT TIGHTNESS [None]
  - TINNITUS [None]
  - YAWNING [None]
